FAERS Safety Report 7672922-X (Version None)
Quarter: 2011Q3

REPORT INFORMATION
  Report Type: 
  Country: None (occurrence: None)
  Receive Date: 20110809
  Receipt Date: 20110803
  Transmission Date: 20111222
  Serious: Yes (Other)
  Sender: FDA-Public Use
  Company Number: PHEH2010US03484

PATIENT
  Sex: Female

DRUGS (2)
  1. ZELNORM [Suspect]
     Indication: GASTRIC DISORDER
  2. LASIX [Concomitant]
     Dosage: 20 MG, PRN

REACTIONS (5)
  - MIGRAINE [None]
  - COSTOCHONDRITIS [None]
  - CHEST DISCOMFORT [None]
  - CARDIAC DISORDER [None]
  - INJURY [None]
